FAERS Safety Report 6263457-X (Version None)
Quarter: 2009Q3

REPORT INFORMATION
  Report Type: 
  Country: None (occurrence: None)
  Receive Date: 20090710
  Receipt Date: 20090316
  Transmission Date: 20100115
  Serious: No
  Sender: FDA-Public Use
  Company Number: A0773628A

PATIENT
  Age: 71 Year
  Sex: Female

DRUGS (15)
  1. FLOVENT [Suspect]
     Indication: ASTHMA
     Dosage: 2PUFF TWICE PER DAY
     Route: 055
     Dates: start: 20090310, end: 20090315
  2. VENTOLIN [Suspect]
     Indication: ASTHMA
     Dosage: 1PUFF AS REQUIRED
     Route: 055
     Dates: start: 20090310, end: 20090315
  3. PREDNISONE TAB [Concomitant]
  4. THEOPHYLLINE [Concomitant]
  5. TYLENOL [Concomitant]
  6. PROVERA [Concomitant]
  7. ESTRACE [Concomitant]
  8. SINGULAIR [Concomitant]
  9. HYDROCHLOROTHIAZIDE [Concomitant]
  10. DIOVAN [Concomitant]
  11. BONIVA [Concomitant]
  12. CHLORPHENIRAMINE [Concomitant]
  13. CALCIUM [Concomitant]
  14. MULTI-VITAMIN [Concomitant]
  15. FISH OIL [Concomitant]

REACTIONS (5)
  - CANDIDIASIS [None]
  - DRY THROAT [None]
  - LIP EXFOLIATION [None]
  - STOMATITIS [None]
  - THROAT IRRITATION [None]
